FAERS Safety Report 4300716-1 (Version None)
Quarter: 2004Q1

REPORT INFORMATION
  Report Type: 
  Country: None (occurrence: None)
  Receive Date: 20040217
  Receipt Date: 20040204
  Transmission Date: 20041129
  Serious: Yes (Other)
  Sender: FDA-Public Use
  Company Number: 204553

PATIENT
  Age: 47 Year
  Sex: Male
  Weight: 80 kg

DRUGS (4)
  1. RITUXAN [Suspect]
     Indication: NON-HODGKIN'S LYMPHOMA
     Dosage: 680 MG, INTRAVENOUS
     Route: 042
     Dates: start: 20011022, end: 20011109
  2. RITUXAN [Suspect]
     Indication: NON-HODGKIN'S LYMPHOMA
     Dosage: 680 MG, INTRAVENOUS
     Route: 042
     Dates: start: 20020117, end: 20020221
  3. ETOPOSIDE [Suspect]
     Indication: NON-HODGKIN'S LYMPHOMA
     Dosage: 900 MG, INTRAVENOUS
     Route: 042
     Dates: start: 20020112, end: 20020115
  4. METHYLPREDNISOLONE [Concomitant]

REACTIONS (4)
  - ARTHRALGIA [None]
  - BLOOD CREATININE INCREASED [None]
  - NEUTROPENIC INFECTION [None]
  - TACHYCARDIA [None]
